FAERS Safety Report 6941578-3 (Version None)
Quarter: 2010Q3

REPORT INFORMATION
  Report Type: 
  Country: None (occurrence: None)
  Receive Date: 20100825
  Receipt Date: 20100817
  Transmission Date: 20110219
  Serious: No
  Sender: FDA-Public Use
  Company Number: US-US-EMD SERONO, INC.-7008212

PATIENT
  Sex: Female

DRUGS (6)
  1. REBIF [Suspect]
     Indication: MULTIPLE SCLEROSIS
     Route: 058
     Dates: start: 20100201
  2. IBUPROFEN [Suspect]
     Indication: PREMEDICATION
     Dates: end: 20100101
  3. HYDROCHLOROTHIAZIDE [Concomitant]
  4. EFFEXOR [Concomitant]
  5. TIMOLOL [Concomitant]
  6. OTHER UNSPECIFIED MEDICATIONS [Concomitant]

REACTIONS (4)
  - GAIT DISTURBANCE [None]
  - HAEMOPTYSIS [None]
  - INJECTION SITE PAIN [None]
  - WEIGHT DECREASED [None]
